FAERS Safety Report 13608950 (Version 3)
Quarter: 2017Q3

REPORT INFORMATION
  Report Type: Report from Study
  Country: US (occurrence: US)
  Receive Date: 20170602
  Receipt Date: 20170718
  Transmission Date: 20171127
  Serious: Yes (Hospitalization)
  Sender: FDA-Public Use
  Company Number: US-GLENMARK PHARMACEUTICALS-2017GMK027598

PATIENT
  Age: 41 Year
  Sex: Female
  Weight: 98.5 kg

DRUGS (7)
  1. BLINDED PIMECROLIMUS ( C ) [Suspect]
     Active Substance: PIMECROLIMUS
     Indication: DERMATITIS ATOPIC
     Dosage: THIN LAYER, BID
     Route: 061
     Dates: start: 20170515, end: 20170517
  2. GABAPENTIN. [Concomitant]
     Active Substance: GABAPENTIN
     Indication: PRODUCT USED FOR UNKNOWN INDICATION
     Dosage: 400 MG, QID AS NEEDED
     Route: 048
     Dates: start: 20170519
  3. BLINDED PLACEBO [Suspect]
     Active Substance: INVESTIGATIONAL PRODUCT
     Indication: DERMATITIS ATOPIC
     Dosage: THIN LAYER, BID
     Route: 061
     Dates: start: 20170515, end: 20170517
  4. BLINDED PIMECROLIMUS (I) [Suspect]
     Active Substance: PIMECROLIMUS
     Indication: DERMATITIS ATOPIC
     Dosage: THIN LAYER, BID
     Route: 061
     Dates: start: 20170515, end: 20170517
  5. ZOLOFT [Concomitant]
     Active Substance: SERTRALINE HYDROCHLORIDE
     Indication: PRODUCT USED FOR UNKNOWN INDICATION
     Dosage: 50 MG, HS
     Route: 048
     Dates: start: 20170519
  6. TRAZODONE HYDROCHLORIDE. [Concomitant]
     Active Substance: TRAZODONE HYDROCHLORIDE
     Indication: PRODUCT USED FOR UNKNOWN INDICATION
     Dosage: 50 MG, HS AS NEEDED
     Route: 048
     Dates: start: 20170519
  7. CEFAZOLIN SODIUM W/DEXTROSE [Concomitant]
     Indication: PRODUCT USED FOR UNKNOWN INDICATION
     Dosage: 1 GM IN 50 MLS AT 100 MLS/HR EVERY 8
     Route: 042
     Dates: end: 20170525

REACTIONS (1)
  - Biliary tract disorder [Recovered/Resolved]

NARRATIVE: CASE EVENT DATE: 20170517
